FAERS Safety Report 15518037 (Version 3)
Quarter: 2020Q3

REPORT INFORMATION
  Report Type: Spontaneous
  Country: DE (occurrence: DE)
  Receive Date: 20181017
  Receipt Date: 20200911
  Transmission Date: 20201102
  Serious: Yes (Other)
  Sender: FDA-Public Use
  Company Number: DE-BAYER-2018-191996

PATIENT
  Age: 81 Year
  Sex: Male
  Weight: 65 kg

DRUGS (3)
  1. GADOVIST [Suspect]
     Active Substance: GADOBUTROL
     Indication: ANGIOGRAM
  2. GADOVIST [Suspect]
     Active Substance: GADOBUTROL
     Indication: MAGNETIC RESONANCE IMAGING ABDOMINAL
     Dosage: 16 ML, ONCE
     Route: 042
     Dates: start: 20180711, end: 20180711
  3. GADOVIST [Suspect]
     Active Substance: GADOBUTROL
     Indication: MAGNETIC RESONANCE IMAGING HEART

REACTIONS (48)
  - Gadolinium deposition disease [None]
  - Arrhythmia [None]
  - Myalgia [None]
  - Headache [None]
  - Bone pain [None]
  - Neck pain [None]
  - Hypopnoea [None]
  - Pruritus [None]
  - Alopecia [None]
  - Skin discolouration [None]
  - Rash follicular [None]
  - Eye irritation [None]
  - Gait disturbance [None]
  - Nontherapeutic agent blood positive [None]
  - Skin fissures [None]
  - Erysipelas [None]
  - Contrast media allergy [None]
  - Diarrhoea [None]
  - Pain in extremity [Not Recovered/Not Resolved]
  - Abdominal pain [None]
  - Photosensitivity reaction [None]
  - Muscle spasms [None]
  - Testicular pain [None]
  - Erectile dysfunction [None]
  - Chest pain [None]
  - Discomfort [None]
  - Skin induration [None]
  - Skin plaque [None]
  - Neuralgia [None]
  - Hiccups [None]
  - Secondary adrenocortical insufficiency [Not Recovered/Not Resolved]
  - Diplopia [None]
  - Dry skin [None]
  - Tremor [None]
  - Contrast media toxicity [None]
  - Rhinorrhoea [None]
  - Gingival bleeding [None]
  - Skin hypertrophy [None]
  - Feeling abnormal [None]
  - Nontherapeutic agent urine positive [None]
  - Hair metal test abnormal [None]
  - Contrast media deposition [None]
  - Visual acuity reduced [None]
  - Fatigue [None]
  - Heart rate decreased [None]
  - Syncope [None]
  - Skin burning sensation [None]
  - Muscle atrophy [Not Recovered/Not Resolved]

NARRATIVE: CASE EVENT DATE: 201807
